FAERS Safety Report 23213257 (Version 1)
Quarter: 2023Q4

REPORT INFORMATION
  Report Type: Spontaneous
  Country: RO (occurrence: RO)
  Receive Date: 20231121
  Receipt Date: 20231121
  Transmission Date: 20240110
  Serious: Yes (Other)
  Sender: FDA-Public Use
  Company Number: RO-SUN PHARMACEUTICAL INDUSTRIES LTD-2023RR-418901

PATIENT
  Age: 55 Year
  Sex: Female

DRUGS (3)
  1. PREGABALIN [Suspect]
     Active Substance: PREGABALIN
     Indication: Mental disorder
     Dosage: 75 MILLIGRAM, TID
     Route: 065
  2. Cipralet [Concomitant]
     Indication: Mental disorder
     Dosage: UNK, 7:00 IN THE EVENING
     Route: 065
  3. QUETIAPINE [Concomitant]
     Active Substance: QUETIAPINE
     Indication: Mental disorder
     Dosage: UNK, 21:00 QUETIAPINE 50
     Route: 065

REACTIONS (3)
  - Syncope [Unknown]
  - Pain [Unknown]
  - Malaise [Unknown]
